FAERS Safety Report 9752082 (Version 4)
Quarter: 2014Q1

REPORT INFORMATION
  Report Type: Spontaneous
  Country: GB (occurrence: GB)
  Receive Date: 20131213
  Receipt Date: 20140310
  Transmission Date: 20141002
  Serious: Yes (Hospitalization)
  Sender: FDA-Public Use
  Company Number: PHFR2013GB006416

PATIENT
  Age: 47 Year
  Sex: Female

DRUGS (5)
  1. CLOZARIL [Suspect]
     Indication: SCHIZOPHRENIA
     Dosage: 350 MG
     Route: 048
     Dates: start: 20130305, end: 20131108
  2. DEPAKOTE [Concomitant]
     Dosage: 250 MG
     Route: 048
  3. VENLAFAXINE XL [Concomitant]
     Dosage: 150 MG, TID
     Route: 048
  4. LEVOTHYROXINE [Concomitant]
     Dosage: 50 MG
  5. SIMVASTATIN [Concomitant]
     Dosage: 40 MG
     Route: 048

REACTIONS (5)
  - Dyspnoea [Recovered/Resolved]
  - Tachycardia [Unknown]
  - Weight increased [Not Recovered/Not Resolved]
  - White blood cell count increased [Not Recovered/Not Resolved]
  - Neutrophil count increased [Recovered/Resolved]
